FAERS Safety Report 8985255 (Version 1)
Quarter: 2012Q4

REPORT INFORMATION
  Report Type: 
  Country: US (occurrence: US)
  Receive Date: 20121226
  Receipt Date: 20121226
  Transmission Date: 20130627
  Serious: No
  Sender: FDA-Public Use
  Company Number: US-BAYER-2012-134807

PATIENT
  Age: 71 Year
  Sex: Female
  Weight: 76.19 kg

DRUGS (3)
  1. ALEVE CAPLET/TABLET,MIDOL EXTENDED RELIEF CAPLET [Suspect]
     Indication: ARTHRITIS
     Dosage: 1 DF, PRN
     Route: 048
     Dates: start: 20121210
  2. BENICAR [Concomitant]
     Dosage: UNK
  3. ASPIRIN [Concomitant]

REACTIONS (1)
  - Drug ineffective [None]
